FAERS Safety Report 6650495-8 (Version None)
Quarter: 2010Q1

REPORT INFORMATION
  Report Type: 
  Country: None (occurrence: None)
  Receive Date: 20100325
  Receipt Date: 20100302
  Transmission Date: 20100710
  Serious: No
  Sender: FDA-Public Use
  Company Number: US-BIOGENIDEC-2010BI006958

PATIENT
  Age: 43 Year
  Sex: Female

DRUGS (2)
  1. AVONEX [Suspect]
     Indication: MULTIPLE SCLEROSIS
     Route: 030
     Dates: start: 20030101, end: 20100209
  2. AVONEX [Suspect]
     Route: 030
     Dates: start: 20030101, end: 20100209

REACTIONS (3)
  - INJECTION SITE PAIN [None]
  - INJECTION SITE PARAESTHESIA [None]
  - JOINT RANGE OF MOTION DECREASED [None]
